FAERS Safety Report 4809078-4 (Version None)
Quarter: 2005Q4

REPORT INFORMATION
  Report Type: 
  Country: None (occurrence: None)
  Receive Date: 20051024
  Receipt Date: 20051024
  Transmission Date: 20060501
  Serious: Yes (Hospitalization)
  Sender: FDA-Public Use
  Company Number: None

PATIENT
  Age: 7 Year
  Sex: Female

DRUGS (1)
  1. CONCERTA [Suspect]
     Indication: ATTENTION DEFICIT/HYPERACTIVITY DISORDER
     Dosage: 27 MG ONCE A DAY ORALLY
     Route: 048
     Dates: start: 20051008, end: 20051012

REACTIONS (8)
  - ANOREXIA [None]
  - CONVULSION [None]
  - COUGH [None]
  - DIZZINESS [None]
  - DYSPEPSIA [None]
  - EYE IRRITATION [None]
  - HEADACHE [None]
  - VOMITING [None]
